FAERS Safety Report 4780718-1 (Version None)
Quarter: 2005Q3

REPORT INFORMATION
  Report Type: 
  Country: None (occurrence: None)
  Receive Date: 20050926
  Receipt Date: 20050919
  Transmission Date: 20060218
  Serious: Yes (Other)
  Sender: FDA-Public Use
  Company Number: HQWYE519919SEP05

PATIENT
  Age: 47 Year
  Sex: Female

DRUGS (1)
  1. ADVIL [Suspect]
     Indication: HEADACHE
     Dosage: 2 CAPSULES ORAL
     Route: 048
     Dates: start: 20050918

REACTIONS (4)
  - COUGH [None]
  - HYPOAESTHESIA ORAL [None]
  - OEDEMA MOUTH [None]
  - RASH GENERALISED [None]
